FAERS Safety Report 25920951 (Version 2)
Quarter: 2025Q4

REPORT INFORMATION
  Report Type: Spontaneous
  Country: EU (occurrence: EU)
  Receive Date: 20251014
  Receipt Date: 20251118
  Transmission Date: 20260117
  Serious: Yes (Life-Threatening, Hospitalization, Other)
  Sender: MYLAN
  Company Number: None

PATIENT
  Age: 13 Year
  Sex: Female
  Weight: 40 kg

DRUGS (5)
  1. CLOZAPINE [Suspect]
     Active Substance: CLOZAPINE
     Indication: Acute psychosis
     Dosage: 25 MILLIGRAM, QD
     Dates: start: 20250905, end: 20250919
  2. CLOZAPINE [Suspect]
     Active Substance: CLOZAPINE
     Indication: Psychiatric decompensation
  3. CLOZAPINE [Suspect]
     Active Substance: CLOZAPINE
     Indication: Psychotic disorder
  4. LAMOTRIGINE [Suspect]
     Active Substance: LAMOTRIGINE
     Indication: Acute psychosis
     Dosage: 35 MILLIGRAM, QD
     Dates: start: 20250617, end: 20250923
  5. LAMOTRIGINE [Suspect]
     Active Substance: LAMOTRIGINE
     Indication: Psychotic disorder

REACTIONS (3)
  - Agranulocytosis [Recovered/Resolved]
  - Urticaria [Recovered/Resolved]
  - Neutropenia [Recovered/Resolved]

NARRATIVE: CASE EVENT DATE: 20250919
